FAERS Safety Report 23057001 (Version 1)
Quarter: 2023Q4

REPORT INFORMATION
  Report Type: Spontaneous
  Country: CN (occurrence: CN)
  Receive Date: 20231012
  Receipt Date: 20231012
  Transmission Date: 20240110
  Serious: Yes (Death)
  Sender: FDA-Public Use
  Company Number: CN-002147023-NVSC2023CN163846

PATIENT
  Age: 90 Year
  Sex: Male

DRUGS (1)
  1. GLIVEC [Suspect]
     Active Substance: IMATINIB MESYLATE
     Indication: Product used for unknown indication
     Dosage: 400 MG (ORALLY-THROUGH THE MOUTH)
     Route: 048
     Dates: start: 20201203

REACTIONS (2)
  - Death [Fatal]
  - Drug intolerance [Unknown]
